FAERS Safety Report 6808158-1 (Version None)
Quarter: 2010Q2

REPORT INFORMATION
  Report Type: 
  Country: None (occurrence: None)
  Receive Date: 20100629
  Receipt Date: 20090504
  Transmission Date: 20101027
  Serious: No
  Sender: FDA-Public Use
  Company Number: US-PFIZER INC-2009186351

PATIENT
  Sex: Male

DRUGS (1)
  1. ZYVOX [Suspect]
     Indication: LOCALISED INFECTION
     Dosage: 600 MG, 2X/DAY
     Route: 048
     Dates: start: 20090304, end: 20090314

REACTIONS (3)
  - ARTHRALGIA [None]
  - ASTHENIA [None]
  - DIZZINESS [None]
